FAERS Safety Report 6964212-5 (Version None)
Quarter: 2010Q3

REPORT INFORMATION
  Report Type: 
  Country: None (occurrence: None)
  Receive Date: 20100903
  Receipt Date: 20100826
  Transmission Date: 20110219
  Serious: Yes (Hospitalization)
  Sender: FDA-Public Use
  Company Number: US-BIOGENIDEC-2010BI027064

PATIENT
  Age: 50 Year
  Sex: Female

DRUGS (10)
  1. AVONEX [Suspect]
     Route: 030
     Dates: start: 20030808, end: 20090101
  2. AVONEX [Suspect]
     Route: 030
     Dates: start: 20090501
  3. LEVOTHYROXINE [Concomitant]
     Indication: HYPOTHYROIDISM
  4. CALCIUM [Concomitant]
     Indication: SUPPLEMENTATION THERAPY
  5. VITAMIN B COMPLEX CAP [Concomitant]
     Indication: SUPPLEMENTATION THERAPY
  6. TRIPLE OMEGA FISH OIL [Concomitant]
     Indication: SUPPLEMENTATION THERAPY
  7. VITAMIN D3 [Concomitant]
     Indication: SUPPLEMENTATION THERAPY
  8. BACLOFEN [Concomitant]
     Indication: PROPHYLAXIS
  9. AMRIX [Concomitant]
     Indication: PROPHYLAXIS
  10. ASPIRIN [Concomitant]

REACTIONS (9)
  - ARTHRITIS [None]
  - DYSPEPSIA [None]
  - FATIGUE [None]
  - FIBROMYALGIA [None]
  - GAIT DISTURBANCE [None]
  - NEUROPATHY PERIPHERAL [None]
  - PAIN [None]
  - RESTLESS LEGS SYNDROME [None]
  - SLEEP APNOEA SYNDROME [None]
